FAERS Safety Report 20510053 (Version 2)
Quarter: 2022Q2

REPORT INFORMATION
  Report Type: Spontaneous
  Country: GB (occurrence: CY)
  Receive Date: 20220224
  Receipt Date: 20220414
  Transmission Date: 20220721
  Serious: Yes (Death, Hospitalization)
  Sender: FDA-Public Use
  Company Number: GB-JNJFOC-20220208354

PATIENT
  Sex: Male

DRUGS (4)
  1. ABIRATERONE [Suspect]
     Active Substance: ABIRATERONE
     Indication: Prostate cancer metastatic
     Route: 048
     Dates: start: 20211012
  2. PREDNISOLONE [Suspect]
     Active Substance: PREDNISOLONE
     Indication: Prostate cancer metastatic
     Route: 048
     Dates: start: 20211012
  3. BENDROFLUMETHIAZIDE [Concomitant]
     Active Substance: BENDROFLUMETHIAZIDE
     Indication: Hypertension
     Dosage: END DATE: ON AN UNSPECIFIED DATE IN 2021
     Route: 048
     Dates: start: 20200730, end: 2021
  4. TAMSULOSIN [Concomitant]
     Active Substance: TAMSULOSIN
     Indication: Bladder disorder
     Dosage: END DATE: ON AN UNSPECIFIED DATE IN 2021
     Route: 048
     Dates: start: 20190912, end: 2021

REACTIONS (2)
  - Kidney infection [Fatal]
  - Sepsis [Fatal]

NARRATIVE: CASE EVENT DATE: 20211222
